FAERS Safety Report 8616533 (Version 2)
Quarter: 2013Q1

REPORT INFORMATION
  Report Type: Spontaneous
  Country: US (occurrence: US)
  Receive Date: 20120615
  Receipt Date: 20130104
  Transmission Date: 20140127
  Serious: No
  Sender: FDA-Public Use
  Company Number: US-ASTRAZENECA-2012SE35831

PATIENT
  Sex: 0

DRUGS (8)
  1. NEXIUM [Suspect]
     Route: 048
     Dates: start: 20060921
  2. TRICOR [Concomitant]
     Dates: start: 20100227
  3. LISINOPRIL HCTZ [Concomitant]
     Dosage: 20/12.5 MG TK ONE T PO QD
     Dates: start: 20060908
  4. BUPROPION XL [Concomitant]
     Dates: start: 20100816
  5. CARISOPRODOL [Concomitant]
     Indication: MUSCLE SPASMS
     Dosage: 350 MG TK ONE T PO Q 6 TO 8 H
     Dates: start: 20061101
  6. HYDROCODONE/APAP [Concomitant]
     Dosage: 10 MG/650 MG TK 1 T PO Q 4 TO 6 H PRN
     Dates: start: 20061103
  7. ALPRAZOLAM [Concomitant]
     Dosage: 1 MG TK HALF TO ONE T PO QD PRN
     Dates: start: 20061103
  8. PREMARIN [Concomitant]
     Dosage: 0.3 MG TK 1 T PO Q 3 DAYS
     Dates: start: 20061103

REACTIONS (2)
  - Osteoporosis [Unknown]
  - Multiple fractures [Unknown]
